FAERS Safety Report 18318094 (Version 2)
Quarter: 2020Q3

REPORT INFORMATION
  Report Type: Spontaneous
  Country: US (occurrence: US)
  Receive Date: 20200928
  Receipt Date: 20200928
  Transmission Date: 20201103
  Serious: No
  Sender: FDA-Public Use
  Company Number: US-PFIZER INC-2020361433

PATIENT
  Age: 68 Year
  Sex: Female
  Weight: 66.68 kg

DRUGS (1)
  1. XELJANZ [Suspect]
     Active Substance: TOFACITINIB CITRATE
     Indication: RHEUMATOID ARTHRITIS
     Dosage: 5 MG, 1X/DAY
     Route: 048
     Dates: start: 2009

REACTIONS (7)
  - Liver function test increased [Unknown]
  - Hypersensitivity [Unknown]
  - Arthralgia [Unknown]
  - Nerve compression [Unknown]
  - Bronchitis [Recovered/Resolved]
  - Decreased immune responsiveness [Unknown]
  - Liver function test decreased [Unknown]

NARRATIVE: CASE EVENT DATE: 202002
